FAERS Safety Report 8910065 (Version 1)
Quarter: 2012Q4

REPORT INFORMATION
  Report Type: Report from Study
  Country: BR (occurrence: BR)
  Receive Date: 20121115
  Receipt Date: 20121115
  Transmission Date: 20130627
  Serious: Yes (Other)
  Sender: FDA-Public Use
  Company Number: BR-ABBOTT-12P-020-1007200-00

PATIENT
  Sex: Male
  Weight: 73 kg

DRUGS (2)
  1. HUMIRA [Suspect]
     Indication: ANKYLOSING SPONDYLITIS
     Route: 058
     Dates: start: 2007, end: 20120701
  2. HUMIRA [Suspect]
     Route: 058
     Dates: start: 20120901

REACTIONS (1)
  - Ligament rupture [Recovered/Resolved]
